FAERS Safety Report 9669051 (Version 2)
Quarter: 2014Q1

REPORT INFORMATION
  Report Type: Spontaneous
  Country: US (occurrence: US)
  Receive Date: 20131105
  Receipt Date: 20140116
  Transmission Date: 20141002
  Serious: No
  Sender: FDA-Public Use
  Company Number: US-PFIZER INC-2013313591

PATIENT
  Age: 50 Year
  Sex: Female
  Weight: 81.63 kg

DRUGS (5)
  1. LYRICA [Suspect]
     Indication: PERIPHERAL NERVE INJURY
     Dosage: 100 MG, UNK
     Dates: start: 201304, end: 201310
  2. LYRICA [Suspect]
     Indication: FIBROMYALGIA
  3. EFFEXOR [Suspect]
     Indication: DEPRESSION
     Dosage: UNK
  4. CYMBALTA [Suspect]
     Indication: DEPRESSION
     Dosage: UNK
  5. CELEXA [Suspect]
     Indication: DEPRESSION
     Dosage: UNK

REACTIONS (7)
  - Intentional drug misuse [Unknown]
  - Drug ineffective [Unknown]
  - Depression [Unknown]
  - Gastrointestinal disorder [Unknown]
  - Mood altered [Unknown]
  - Pain [Unknown]
  - Drug withdrawal syndrome [Unknown]
